FAERS Safety Report 17348099 (Version 1)
Quarter: 2020Q1

REPORT INFORMATION
  Report Type: Report from Study
  Country: US (occurrence: US)
  Receive Date: 20200129
  Receipt Date: 20200129
  Transmission Date: 20200409
  Serious: No
  Sender: FDA-Public Use
  Company Number: US-EXELIXIS-CABO-19023573

PATIENT
  Age: 76 Year
  Sex: Female

DRUGS (3)
  1. CABOMETYX [Suspect]
     Active Substance: CABOZANTINIB S-MALATE
     Indication: SMALL INTESTINE CARCINOMA
     Dosage: 60 MG, QD
     Dates: start: 20190812, end: 20190829
  2. CABOMETYX [Suspect]
     Active Substance: CABOZANTINIB S-MALATE
     Indication: NEUROENDOCRINE TUMOUR
     Dosage: 40 MG
  3. CABOMETYX [Suspect]
     Active Substance: CABOZANTINIB S-MALATE
     Dosage: 60 MG, QD
     Dates: end: 20191104

REACTIONS (8)
  - Faeces pale [Unknown]
  - Balance disorder [Unknown]
  - Stomatitis [Unknown]
  - Toxicity to various agents [Unknown]
  - Fatigue [Unknown]
  - Nasal dryness [Unknown]
  - Rash morbilliform [Unknown]
  - Off label use [Unknown]

NARRATIVE: CASE EVENT DATE: 201908
